FAERS Safety Report 4688374-8 (Version None)
Quarter: 2005Q2

REPORT INFORMATION
  Report Type: 
  Country: None (occurrence: None)
  Receive Date: 20050609
  Receipt Date: 20050524
  Transmission Date: 20051028
  Serious: Yes (Death, Life-Threatening, Hospitalization)
  Sender: FDA-Public Use
  Company Number: 2004-00769

PATIENT
  Age: 66 Year
  Sex: Male

DRUGS (9)
  1. VELCADE [Suspect]
     Indication: MULTIPLE MYELOMA
     Dosage: 1.30 MG/M2, 2/WEEK, INTRAVENOUS
     Route: 042
     Dates: start: 20040817, end: 20041029
  2. CLODRONATE DISODIUM (CLODRONATE DISODIUM) [Concomitant]
  3. FENTANYL [Concomitant]
  4. CYCLIZINE (CYCLIZINE) [Concomitant]
  5. LANSOPRAZOLE [Concomitant]
  6. CODEINE PHOSPHATE (ZOPICLONE) [Concomitant]
  7. ZOPICLONE (ZOPICLONE) [Concomitant]
  8. PIRITON (CHLORPHENAMINE MALEATE) [Concomitant]
  9. AMITRIPTYLINE HCL [Concomitant]

REACTIONS (45)
  - ABDOMINAL ADHESIONS [None]
  - ABDOMINAL DISTENSION [None]
  - ABDOMINAL PAIN [None]
  - ACTIVATED PARTIAL THROMBOPLASTIN TIME PROLONGED [None]
  - ASPARTATE AMINOTRANSFERASE INCREASED [None]
  - ATRIOVENTRICULAR BLOCK COMPLETE [None]
  - BLOOD ALBUMIN DECREASED [None]
  - BLOOD AMYLASE INCREASED [None]
  - BLOOD BICARBONATE DECREASED [None]
  - BLOOD BILIRUBIN INCREASED [None]
  - BLOOD CREATININE INCREASED [None]
  - BLOOD GLUCOSE INCREASED [None]
  - BLOOD LACTATE DEHYDROGENASE INCREASED [None]
  - BLOOD PH DECREASED [None]
  - BLOOD POTASSIUM INCREASED [None]
  - BLOOD SODIUM DECREASED [None]
  - BODY TEMPERATURE INCREASED [None]
  - BOWEL SOUNDS ABNORMAL [None]
  - C-REACTIVE PROTEIN INCREASED [None]
  - CARDIAC ARREST [None]
  - COAGULOPATHY [None]
  - CONDITION AGGRAVATED [None]
  - DILATATION VENTRICULAR [None]
  - DISSEMINATED INTRAVASCULAR COAGULATION [None]
  - FALL [None]
  - GLASGOW COMA SCALE ABNORMAL [None]
  - GLOBULINS INCREASED [None]
  - HAEMOGLOBIN DECREASED [None]
  - HEART RATE INCREASED [None]
  - INTERNATIONAL NORMALISED RATIO INCREASED [None]
  - INTRA-ABDOMINAL HAEMORRHAGE [None]
  - NEUTROPENIA [None]
  - ORAL INTAKE REDUCED [None]
  - PCO2 INCREASED [None]
  - PO2 DECREASED [None]
  - PROTEIN TOTAL INCREASED [None]
  - PROTHROMBIN TIME PROLONGED [None]
  - PUPIL FIXED [None]
  - RESPIRATORY RATE INCREASED [None]
  - STOMA SITE REACTION [None]
  - STREPTOCOCCAL SEPSIS [None]
  - SWELLING [None]
  - THROMBOCYTOPENIA [None]
  - URINARY RETENTION [None]
  - WHITE BLOOD CELL COUNT DECREASED [None]
